FAERS Safety Report 5758080-7 (Version None)
Quarter: 2008Q2

REPORT INFORMATION
  Report Type: 
  Country: None (occurrence: None)
  Receive Date: 20080530
  Receipt Date: 20080522
  Transmission Date: 20081010
  Serious: Yes (Other)
  Sender: FDA-Public Use
  Company Number: DSA_62138_2008

PATIENT
  Sex: Male

DRUGS (1)
  1. DIASTAT ACUDIAL [Suspect]
     Indication: CONVULSION
     Dosage: 7.5 MG PRN RECTAL
     Route: 054
     Dates: start: 20070101

REACTIONS (3)
  - CONVULSION [None]
  - DRUG INEFFECTIVE [None]
  - PHARMACEUTICAL PRODUCT COMPLAINT [None]
